FAERS Safety Report 10767446 (Version 2)
Quarter: 2021Q2

REPORT INFORMATION
  Report Type: Spontaneous
  Country: PL (occurrence: PL)
  Receive Date: 20150205
  Receipt Date: 20210426
  Transmission Date: 20210716
  Serious: Yes (Life-Threatening, Hospitalization, Other)
  Sender: FDA-Public Use
  Company Number: PL-BAXTER-2015BAX004551

PATIENT
  Age: 28 Year
  Sex: Female

DRUGS (7)
  1. ENDOXAN [Suspect]
     Active Substance: CYCLOPHOSPHAMIDE
     Indication: HODGKIN^S DISEASE
     Route: 065
  2. PREDNISONE. [Suspect]
     Active Substance: PREDNISONE
     Indication: HODGKIN^S DISEASE
     Route: 065
  3. ETOPOSIDE. [Suspect]
     Active Substance: ETOPOSIDE
     Indication: HODGKIN^S DISEASE
     Route: 065
  4. PROCARBAZINE [Suspect]
     Active Substance: PROCARBAZINE
     Indication: HODGKIN^S DISEASE
     Route: 065
  5. DOXORUBICIN [Suspect]
     Active Substance: DOXORUBICIN
     Indication: HODGKIN^S DISEASE
     Route: 065
  6. VINCRISTINE [Suspect]
     Active Substance: VINCRISTINE
     Indication: HODGKIN^S DISEASE
     Route: 065
  7. BLEOMYCIN [Suspect]
     Active Substance: BLEOMYCIN SULFATE
     Indication: HODGKIN^S DISEASE
     Route: 065

REACTIONS (27)
  - Disseminated intravascular coagulation [Recovered/Resolved]
  - Pyrexia [Recovered/Resolved]
  - Gastrointestinal haemorrhage [Recovered/Resolved]
  - Respiratory failure [Recovered/Resolved]
  - Gastrointestinal necrosis [Recovered/Resolved]
  - Circulatory collapse [Recovered/Resolved]
  - Multiple organ dysfunction syndrome [Recovered/Resolved]
  - Gastritis [Unknown]
  - Necrosis [Recovered/Resolved]
  - Hypovolaemia [Recovered/Resolved]
  - Gastritis haemorrhagic [Recovered/Resolved]
  - Thrombocytopenia [Recovered/Resolved]
  - Abdominal discomfort [Recovered/Resolved]
  - Vomiting [Recovered/Resolved]
  - Haemorrhage [Recovered/Resolved]
  - Necrotising gastritis [Recovered/Resolved]
  - Mucosal inflammation [Recovered/Resolved]
  - Abdominal pain upper [Recovered/Resolved]
  - Neutropenia [Recovered/Resolved]
  - Condition aggravated [Recovered/Resolved]
  - Pneumonia [Recovered/Resolved]
  - Abdominal pain [Recovered/Resolved]
  - Cardiac arrest [Recovered/Resolved]
  - Septic shock [Recovered/Resolved]
  - Haematemesis [Recovered/Resolved]
  - Coagulopathy [Recovered/Resolved]
  - Staphylococcal infection [Recovered/Resolved]
